FAERS Safety Report 6927594-6 (Version None)
Quarter: 2010Q3

REPORT INFORMATION
  Report Type: 
  Country: None (occurrence: None)
  Receive Date: 20100816
  Receipt Date: 20100816
  Transmission Date: 20110219
  Serious: Yes (Other)
  Sender: FDA-Public Use
  Company Number: None

PATIENT
  Sex: Female
  Weight: 54.4316 kg

DRUGS (3)
  1. SEROQUEL [Suspect]
     Indication: AFFECTIVE DISORDER
     Dosage: 300 MG AT BEDTIME MOUTH
     Route: 048
     Dates: start: 20070201, end: 20080101
  2. SEROQUEL [Suspect]
     Indication: BIPOLAR DISORDER
     Dosage: 300 MG AT BEDTIME MOUTH
     Route: 048
     Dates: start: 20070201, end: 20080101
  3. CHANTIX [Suspect]
     Indication: INSOMNIA
     Dosage: 1 MG/0.5 MG DAILY (2) MOUTH
     Route: 048
     Dates: start: 20100101

REACTIONS (1)
  - DRUG HYPERSENSITIVITY [None]
